FAERS Safety Report 7762070-2 (Version None)
Quarter: 2011Q3

REPORT INFORMATION
  Report Type: 
  Country: None (occurrence: None)
  Receive Date: 20110920
  Receipt Date: 20110920
  Transmission Date: 20111222
  Serious: Yes (Other)
  Sender: FDA-Public Use
  Company Number: None

PATIENT
  Age: 61 Year
  Sex: Male
  Weight: 93.3 kg

DRUGS (1)
  1. RITUXIMAB [Suspect]
     Indication: B-CELL LYMPHOMA
     Dosage: 670 MG
     Route: 042
     Dates: start: 20110818, end: 20110818

REACTIONS (7)
  - INFUSION RELATED REACTION [None]
  - DYSPEPSIA [None]
  - DRY MOUTH [None]
  - FEELING ABNORMAL [None]
  - MUSCLE TWITCHING [None]
  - NAUSEA [None]
  - HYPOPNOEA [None]
